FAERS Safety Report 4821730-3 (Version None)
Quarter: 2005Q4

REPORT INFORMATION
  Report Type: 
  Country: None (occurrence: None)
  Receive Date: 20051104
  Receipt Date: 20051104
  Transmission Date: 20060501
  Serious: No
  Sender: FDA-Public Use
  Company Number: None

PATIENT
  Age: 32 Year
  Sex: Male
  Weight: 100.2449 kg

DRUGS (2)
  1. DOCETAXEL 163 MG IV [Suspect]
     Indication: OESOPHAGEAL CARCINOMA
     Dosage: 163MG IV
     Route: 042
     Dates: start: 20050705
  2. DOCETAXEL 163 MG IV [Suspect]
     Indication: OESOPHAGEAL CARCINOMA
     Dosage: 163MG IV
     Route: 042
     Dates: start: 20050727

REACTIONS (17)
  - ABDOMINAL PAIN UPPER [None]
  - DEHYDRATION [None]
  - DIARRHOEA [None]
  - DIZZINESS [None]
  - ENCEPHALITIS [None]
  - ENTEROVIRUS INFECTION [None]
  - HAEMATEMESIS [None]
  - HAEMORRHAGE [None]
  - MALLORY-WEISS SYNDROME [None]
  - MENINGITIS VIRAL [None]
  - NAUSEA [None]
  - NEUTROPENIA [None]
  - ORAL CANDIDIASIS [None]
  - PRODUCTIVE COUGH [None]
  - SPUTUM ABNORMAL [None]
  - TENDERNESS [None]
  - VOMITING [None]
